FAERS Safety Report 9024311 (Version 2)
Quarter: 2013Q1

REPORT INFORMATION
  Report Type: Spontaneous
  Country: BR (occurrence: BR)
  Receive Date: 20130121
  Receipt Date: 20130220
  Transmission Date: 20140127
  Serious: Yes (Other)
  Sender: FDA-Public Use
  Company Number: PHHY2013BR004521

PATIENT
  Sex: Male

DRUGS (2)
  1. FORASEQ [Suspect]
     Dosage: 1 DF, UNK
     Route: 064
     Dates: end: 201206
  2. MIFLONIDE [Suspect]
     Route: 064

REACTIONS (2)
  - Cardiac disorder [Recovering/Resolving]
  - Foetal exposure during pregnancy [Unknown]
